FAERS Safety Report 6998555-6 (Version None)
Quarter: 2010Q3

REPORT INFORMATION
  Report Type: 
  Country: None (occurrence: None)
  Receive Date: 20100920
  Receipt Date: 20090819
  Transmission Date: 20110219
  Serious: No
  Sender: FDA-Public Use
  Company Number: PR-ASTRAZENECA-2009SE09058

PATIENT
  Age: 31 Year
  Sex: Male
  Weight: 74.8 kg

DRUGS (1)
  1. SEROQUEL XR [Suspect]
     Route: 048

REACTIONS (9)
  - ASTHENIA [None]
  - CHEST PAIN [None]
  - DEPRESSION [None]
  - FATIGUE [None]
  - HYPERSOMNIA [None]
  - HYPOAESTHESIA [None]
  - ILL-DEFINED DISORDER [None]
  - INCREASED APPETITE [None]
  - WEIGHT DECREASED [None]
